FAERS Safety Report 5631527-2 (Version None)
Quarter: 2008Q1

REPORT INFORMATION
  Report Type: 
  Country: None (occurrence: None)
  Receive Date: 20080215
  Receipt Date: 20080207
  Transmission Date: 20080703
  Serious: Yes (Death)
  Sender: FDA-Public Use
  Company Number: OPER20080020

PATIENT
  Sex: Male

DRUGS (5)
  1. OPANA ER [Suspect]
  2. OPANA [Suspect]
  3. XANAX [Suspect]
  4. MARIJUANA [Suspect]
  5. ALCOHOL [Suspect]

REACTIONS (3)
  - MULTIPLE DRUG OVERDOSE [None]
  - SELF-MEDICATION [None]
  - WRONG TECHNIQUE IN DRUG USAGE PROCESS [None]
